FAERS Safety Report 17831892 (Version 1)
Quarter: 2020Q2

REPORT INFORMATION
  Report Type: Spontaneous
  Country: US (occurrence: US)
  Receive Date: 20200527
  Receipt Date: 20200527
  Transmission Date: 20200714
  Serious: No
  Sender: FDA-Public Use
  Company Number: US-ROCHE-2545995

PATIENT
  Age: 46 Year
  Sex: Female
  Weight: 99.88 kg

DRUGS (2)
  1. OCREVUS [Suspect]
     Active Substance: OCRELIZUMAB
     Indication: RELAPSING MULTIPLE SCLEROSIS
     Dosage: THEN 600 MG EVERY 6 MONTHS
     Route: 042
     Dates: start: 20200113, end: 20200127
  2. OCREVUS [Suspect]
     Active Substance: OCRELIZUMAB
     Dosage: SECOND HALF DOSE ;ONGOING: NO
     Route: 042
     Dates: start: 20200127, end: 20200127

REACTIONS (8)
  - Lymphadenopathy [Not Recovered/Not Resolved]
  - Flushing [Unknown]
  - Ear pruritus [Recovered/Resolved]
  - Oropharyngeal pain [Not Recovered/Not Resolved]
  - Cough [Recovered/Resolved with Sequelae]
  - Wheezing [Recovered/Resolved]
  - Musculoskeletal stiffness [Recovered/Resolved]
  - Dyspnoea [Not Recovered/Not Resolved]

NARRATIVE: CASE EVENT DATE: 20200113
